FAERS Safety Report 25768390 (Version 1)
Quarter: 2025Q3

REPORT INFORMATION
  Report Type: Spontaneous
  Country: US (occurrence: US)
  Receive Date: 20250905
  Receipt Date: 20250905
  Transmission Date: 20251021
  Serious: No
  Sender: DOMPE FARMACEUTICI
  Company Number: US-FARMAPROD-202506-2065

PATIENT
  Sex: Male
  Weight: 70.31 kg

DRUGS (29)
  1. OXERVATE [Suspect]
     Active Substance: CENEGERMIN-BKBJ
     Indication: Neurotrophic keratopathy
     Route: 047
     Dates: start: 20201218
  2. OXERVATE [Suspect]
     Active Substance: CENEGERMIN-BKBJ
     Route: 047
     Dates: start: 20250612
  3. DAPTOMYCIN [Concomitant]
     Active Substance: DAPTOMYCIN
  4. MAGNESIUM OXIDE [Concomitant]
     Active Substance: MAGNESIUM OXIDE
  5. TRAVATAN Z [Concomitant]
     Active Substance: TRAVOPROST
  6. VITAMIN C [Concomitant]
     Active Substance: ASCORBIC ACID
  7. VITAMIN B COMPLEX [Concomitant]
     Active Substance: CYANOCOBALAMIN\DEXPANTHENOL\NIACINAMIDE\PYRIDOXINE HYDROCHLORIDE\RIBOFLAVIN 5^-PHOSPHATE SODIUM\THIA
  8. VITAMINS [Concomitant]
     Active Substance: VITAMINS
  9. LISINOPRIL [Concomitant]
     Active Substance: LISINOPRIL
  10. DOXYCYCLINE HYCLATE [Concomitant]
     Active Substance: DOXYCYCLINE HYCLATE
  11. ASPIRIN [Concomitant]
     Active Substance: ASPIRIN
  12. ACYCLOVIR [Concomitant]
     Active Substance: ACYCLOVIR
  13. EYE DROPS [TETRYZOLINE HYDROCHLORIDE] [Concomitant]
  14. GENTEAL TEARS (MILD) [Concomitant]
     Active Substance: DEXTRAN 70\HYPROMELLOSE 2910 (4000 MPA.S)
  15. LOTEMAX [Concomitant]
     Active Substance: LOTEPREDNOL ETABONATE
  16. COMBIGAN [Concomitant]
     Active Substance: BRIMONIDINE TARTRATE\TIMOLOL MALEATE
  17. MOXIFLOXACIN [Concomitant]
     Active Substance: MOXIFLOXACIN
  18. VITAMIN E [Concomitant]
     Active Substance: .ALPHA.-TOCOPHEROL
  19. FISH OIL [Concomitant]
     Active Substance: FISH OIL
  20. CALCIUM CARBONATE\CHOLECALCIFEROL [Concomitant]
     Active Substance: CALCIUM CARBONATE\CHOLECALCIFEROL
  21. IBANDRONATE  SODIUM [Concomitant]
  22. OMEPRAZOLE [Concomitant]
     Active Substance: OMEPRAZOLE
  23. SYMBICORT [Concomitant]
     Active Substance: BUDESONIDE\FORMOTEROL FUMARATE DIHYDRATE
  24. ROSUVASTATIN CALCIUM [Concomitant]
     Active Substance: ROSUVASTATIN CALCIUM
  25. GLIMEPIRIDE [Concomitant]
     Active Substance: GLIMEPIRIDE
  26. AMLODIPINE BESYLATE [Concomitant]
     Active Substance: AMLODIPINE BESYLATE
  27. CLOPIDOGREL [Concomitant]
     Active Substance: CLOPIDOGREL BISULFATE
  28. PREDNISONE [Concomitant]
     Active Substance: PREDNISONE
  29. HYDROCHLOROTHIAZIDE [Concomitant]
     Active Substance: HYDROCHLOROTHIAZIDE

REACTIONS (3)
  - Eyelid pain [Unknown]
  - Eye pain [Unknown]
  - Eye swelling [Unknown]
